FAERS Safety Report 6484394-1 (Version None)
Quarter: 2009Q4

REPORT INFORMATION
  Report Type: 
  Country: None (occurrence: None)
  Receive Date: 20091209
  Receipt Date: 20091202
  Transmission Date: 20100525
  Serious: Yes (Other)
  Sender: FDA-Public Use
  Company Number: CN-JNJFOC-20091201642

PATIENT
  Age: 20 Year
  Sex: Male

DRUGS (2)
  1. INVEGA [Suspect]
     Indication: SCHIZOPHRENIA
     Route: 048
     Dates: start: 20091120, end: 20091126
  2. ARTANE [Concomitant]
     Indication: PROPHYLAXIS

REACTIONS (1)
  - HEPATIC ENZYME INCREASED [None]
